FAERS Safety Report 22124642 (Version 1)
Quarter: 2023Q1

REPORT INFORMATION
  Report Type: Spontaneous
  Country: EG (occurrence: EG)
  Receive Date: 20230322
  Receipt Date: 20230322
  Transmission Date: 20230418
  Serious: Yes (Other)
  Sender: FDA-Public Use
  Company Number: EG-002147023-NVSC2023EG052454

PATIENT
  Age: 35 Year
  Sex: Female

DRUGS (4)
  1. ACLASTA [Suspect]
     Active Substance: ZOLEDRONIC ACID
     Indication: Osteopenia
     Dosage: 5 MG, Q12MO
     Route: 041
     Dates: start: 20230301, end: 20230301
  2. ACLASTA [Suspect]
     Active Substance: ZOLEDRONIC ACID
     Indication: Fibromyalgia
  3. CRESTOR [Concomitant]
     Active Substance: ROSUVASTATIN CALCIUM
     Indication: Blood cholesterol
     Dosage: UNK, QOD
     Route: 065
  4. CRESTOR [Concomitant]
     Active Substance: ROSUVASTATIN CALCIUM
     Dosage: 5 MG, QD (DID NOT START THIS REGIMEN YET)
     Route: 065

REACTIONS (7)
  - Palpitations [Recovering/Resolving]
  - Movement disorder [Recovering/Resolving]
  - Asthenia [Recovering/Resolving]
  - Fatigue [Recovering/Resolving]
  - Costochondritis [Not Recovered/Not Resolved]
  - Pain [Not Recovered/Not Resolved]
  - Hypoaesthesia [Recovering/Resolving]

NARRATIVE: CASE EVENT DATE: 20230301
